FAERS Safety Report 13012820 (Version 1)
Quarter: 2016Q4

REPORT INFORMATION
  Report Type: Spontaneous
  Country: CN (occurrence: CN)
  Receive Date: 20161209
  Receipt Date: 20161209
  Transmission Date: 20170207
  Serious: Yes (Other)
  Sender: FDA-Public Use
  Company Number: CN-PFIZER INC-2016564989

PATIENT
  Age: 83 Year
  Sex: Male

DRUGS (1)
  1. LIPITOR [Suspect]
     Active Substance: ATORVASTATIN CALCIUM
     Indication: HYPERLIPIDAEMIA
     Dosage: UNK
     Route: 048

REACTIONS (5)
  - Prostate cancer [Unknown]
  - Renal failure [Unknown]
  - Infection [Unknown]
  - Hypertension [Unknown]
  - Blood creatine phosphokinase increased [Recovering/Resolving]
